FAERS Safety Report 4339159-3 (Version None)
Quarter: 2004Q2

REPORT INFORMATION
  Report Type: 
  Country: None (occurrence: None)
  Receive Date: 20040412
  Receipt Date: 20040329
  Transmission Date: 20050107
  Serious: Yes (Death)
  Sender: FDA-Public Use
  Company Number: 2003-BP-06225PF

PATIENT
  Age: 92 Year
  Sex: Female

DRUGS (7)
  1. SPIRIVA [Suspect]
     Dosage: 18 MCG (18 MCG) IH
  2. AMIODOFONA (NR) [Concomitant]
  3. NIMOTOP (NIMODIPINE) (NR) [Concomitant]
  4. HYDROCHLOROTHIAZIDE [Concomitant]
  5. AMIKIN (NR) [Concomitant]
  6. ASPIRIN [Concomitant]
  7. ISOPTIN (NR) [Concomitant]

REACTIONS (2)
  - CARDIAC FAILURE [None]
  - PNEUMONIA [None]
